FAERS Safety Report 9456055 (Version 1)
Quarter: 2013Q3

REPORT INFORMATION
  Report Type: Spontaneous
  Country: FR (occurrence: None)
  Receive Date: 20130808
  Receipt Date: 20130808
  Transmission Date: 20140515
  Serious: Yes (Hospitalization)
  Sender: FDA-Public Use
  Company Number: DSM-2013-00728

PATIENT
  Age: 83 Year
  Sex: Female

DRUGS (9)
  1. OLMETEC [Suspect]
     Indication: PRODUCT USED FOR UNKNOWN INDICATION
     Route: 048
  2. TIMOPTOL LP [Suspect]
     Indication: PRODUCT USED FOR UNKNOWN INDICATION
     Route: 047
  3. BOLINAN (POLYVIDONE) (2 GAM, TABLET) (POLYVIDONE) [Suspect]
     Indication: PRODUCT USED FOR UNKNOWN INDICATION
     Route: 048
     Dates: start: 20130802
  4. SANGUINARIA CANADENSIS 7 CH (SANGUINARIA CANADENSIS) (GRANULES) (SANGUINARIA CANADENEIS) [Concomitant]
  5. BRYONIA 7 CH (CAMPHOR, BENZYL NICOTINATE, METHYL SALICYLATE, BORNYL SALICYLATE, CAPSICUM ANNUUM EXTRACT, SALVIA OFFICIANLIS ESSENTIAL OIL, ARNICA SPP. ROOT LIQUID EXTRACT, ARNICA SPP. HERB LIQUID EXTRACT, BRYONIA SPP. TINCTURE (GRANULES) (CAMPHOS, BENZYL NICOTINATE, METHYL SALICYLATE, BORNYL SALICYLATE, CAPSICUM ANNUM EXTRACT, SALVIA OFFICINALIS ESSENTIAL OIL, ARNICA SPP. ROOT LIQUID EXTRACT, ARNICA SPP.HERB LIQUID EXTRACT, BRYONIA SPP. TINCTURE) [Concomitant]
  6. RHUS TOXICODENDRONE 9 CH (RHUS RADICANS) (GRANULES) (RHUS RADICANS) [Concomitant]
  7. ARGENTUM NITRICUM 9 CH (SILVER NITRATE) (SILVER NITRAE0 [Concomitant]
  8. ARSENICUM ALBUM 9 CH (ARSENIC) (ARSENIC) [Concomitant]
  9. LYCOPODIUM 15 CH (LYCOPODIUM SPP.) (LYCOPODIUM SPP.) [Concomitant]

REACTIONS (4)
  - Hyponatraemia [None]
  - Malaise [None]
  - Abdominal pain upper [None]
  - Nausea [None]
